FAERS Safety Report 7545830-2 (Version None)
Quarter: 2011Q2

REPORT INFORMATION
  Report Type: 
  Country: None (occurrence: None)
  Receive Date: 20110524
  Receipt Date: 20110307
  Transmission Date: 20111010
  Serious: No
  Sender: FDA-Public Use
  Company Number: 028833

PATIENT
  Sex: Female
  Weight: 54.4 kg

DRUGS (3)
  1. ORAL CONTRACEPTIVE NOS [Concomitant]
  2. PENTASA [Concomitant]
  3. CIMZIA [Suspect]
     Indication: CROHN'S DISEASE
     Dosage: (400 MG 1X/4 WEEKS, 2 SHOTS 200 MG EACH SHOT SUBCUTANEOUS)
     Route: 058
     Dates: start: 20101001

REACTIONS (2)
  - DRUG DOSE OMISSION [None]
  - CROHN'S DISEASE [None]
